FAERS Safety Report 8020996-9 (Version None)
Quarter: 2011Q4

REPORT INFORMATION
  Report Type: 
  Country: None (occurrence: None)
  Receive Date: 20111229
  Receipt Date: 20111229
  Transmission Date: 20120403
  Serious: No
  Sender: FDA-Public Use
  Company Number: None

PATIENT
  Age: 75 Year
  Sex: Female
  Weight: 55 kg

DRUGS (1)
  1. AVELOX [Suspect]
     Indication: PNEUMONIA
     Dosage: 400 GM IVPB Q 24? X 2 DOSES
     Route: 042

REACTIONS (3)
  - HALLUCINATION, AUDITORY [None]
  - PARANOIA [None]
  - DISORIENTATION [None]
